FAERS Safety Report 6056083-9 (Version None)
Quarter: 2009Q1

REPORT INFORMATION
  Report Type: 
  Country: None (occurrence: None)
  Receive Date: 20090126
  Receipt Date: 20090116
  Transmission Date: 20090719
  Serious: Yes (Hospitalization)
  Sender: FDA-Public Use
  Company Number: 2009JP005037

PATIENT
  Age: 37 Year
  Sex: Male
  Weight: 64 kg

DRUGS (8)
  1. PROTOPIC [Suspect]
     Indication: DERMATITIS ATOPIC
     Dosage: 0.1 %, TOPICAL
     Route: 061
     Dates: start: 20030529
  2. STEROID [Concomitant]
  3. ALLELOCK (OLOPATADINE HYDROCHLORIDE) TABLET [Concomitant]
  4. POLARAMINE (CHLORPHENAMINE MALEATE) TABLET [Concomitant]
  5. CERCINE (DIAZEPAM) TABLET [Concomitant]
  6. LIDOMEX (PREDNISOLONE VALEROACETATE) [Concomitant]
  7. HIRUDOID (HEPARINOID) CREAM [Concomitant]
  8. DIFLAL (DIFLORASONE DIACETATE) OINTMENT [Concomitant]

REACTIONS (2)
  - APPLICATION SITE NODULE [None]
  - DIFFUSE LARGE B-CELL LYMPHOMA [None]
